FAERS Safety Report 7916001-2 (Version None)
Quarter: 2011Q4

REPORT INFORMATION
  Report Type: 
  Country: None (occurrence: None)
  Receive Date: 20111115
  Receipt Date: 20111031
  Transmission Date: 20120403
  Serious: Yes (Other)
  Sender: FDA-Public Use
  Company Number: CZ-WATSON-2011-19164

PATIENT
  Age: 15 Year
  Sex: Female

DRUGS (4)
  1. VALPROATE SODIUM [Suspect]
     Indication: EPILEPSY
     Dosage: UNK
  2. CARBAMAZEPINE [Suspect]
     Indication: EPILEPSY
     Dosage: UNK
  3. PRIMIDONE [Suspect]
     Indication: SIMPLE PARTIAL SEIZURES
     Dosage: UNK
  4. PHENOBARBITAL TAB [Suspect]
     Indication: EPILEPSY
     Dosage: UNK

REACTIONS (2)
  - CONVULSION [None]
  - DRUG INTERACTION [None]
